FAERS Safety Report 13720269 (Version 1)
Quarter: 2017Q3

REPORT INFORMATION
  Report Type: Other
  Country: DE (occurrence: DE)
  Receive Date: 20170706
  Receipt Date: 20170706
  Transmission Date: 20171127
  Serious: No
  Sender: FDA-Public Use
  Company Number: DE-LUPIN PHARMACEUTICALS INC.-E2B_00007056

PATIENT
  Sex: Female
  Weight: 92 kg

DRUGS (8)
  1. LIPIDIL [Suspect]
     Active Substance: FENOFIBRATE
     Indication: ARTERIAL OCCLUSIVE DISEASE
     Dosage: UNK UNK,UNK,UNKNOWN
     Route: 048
     Dates: start: 2016
  2. ATORVASTATIN [Suspect]
     Active Substance: ATORVASTATIN
     Dosage: UNK UNK,UNK,UNKNOWN
     Route: 048
  3. PRAVASTATIN. [Suspect]
     Active Substance: PRAVASTATIN
     Indication: ARTERIAL OCCLUSIVE DISEASE
     Dosage: 20 MG,UNK,UNKNOWN
     Route: 048
     Dates: start: 2013
  4. SIMVASTATIN. [Suspect]
     Active Substance: SIMVASTATIN
     Indication: ARTERIAL OCCLUSIVE DISEASE
     Dosage: 20 MG,UNK,UNKNOWN
     Route: 048
     Dates: start: 2012
  5. ATORVASTATIN [Suspect]
     Active Substance: ATORVASTATIN
     Indication: ARTERIAL OCCLUSIVE DISEASE
     Dosage: 10 MG,UNK,UNKNOWN
     Route: 048
     Dates: start: 2013
  6. LIPIDIL [Suspect]
     Active Substance: FENOFIBRATE
     Dosage: UNK UNK,UNK,UNKNOWN
     Route: 048
  7. SIMVASTATIN. [Suspect]
     Active Substance: SIMVASTATIN
     Dosage: UNK UNK,UNK,UNKNOWN
     Route: 048
  8. PRAVASTATIN. [Suspect]
     Active Substance: PRAVASTATIN
     Dosage: UNK UNK,UNK,UNKNOWN
     Route: 048

REACTIONS (1)
  - Myalgia [Not Recovered/Not Resolved]
